FAERS Safety Report 4608650-4 (Version None)
Quarter: 2005Q1

REPORT INFORMATION
  Report Type: 
  Country: None (occurrence: None)
  Receive Date: 20050315
  Receipt Date: 20050120
  Transmission Date: 20050727
  Serious: Yes (Hospitalization)
  Sender: FDA-Public Use
  Company Number: US-AMGEN-US108704

PATIENT
  Sex: Male

DRUGS (18)
  1. EPOGEN [Suspect]
     Indication: DIALYSIS
     Dates: start: 20040726
  2. CARDURA [Concomitant]
  3. PREMARIN [Concomitant]
  4. VALTREX [Concomitant]
  5. CALCIUM CARBONATE [Concomitant]
  6. ZETIA [Concomitant]
  7. FLONASE [Concomitant]
  8. INSULIN [Concomitant]
  9. PREDNISONE [Concomitant]
  10. COLACE [Concomitant]
  11. CYCLOSPORINE [Concomitant]
  12. PRAVACHOL [Concomitant]
  13. VITAMIN C [Concomitant]
  14. FOLIC ACID [Concomitant]
  15. LOPID [Concomitant]
  16. COZAAR [Concomitant]
  17. FERROUS SULFATE TAB [Concomitant]
  18. CLARITIN [Concomitant]

REACTIONS (1)
  - THERAPEUTIC RESPONSE DECREASED [None]
